FAERS Safety Report 22349594 (Version 1)
Quarter: 2023Q2

REPORT INFORMATION
  Report Type: Spontaneous
  Country: US (occurrence: US)
  Receive Date: 20230522
  Receipt Date: 20230522
  Transmission Date: 20230722
  Serious: No
  Sender: FDA-Public Use
  Company Number: US-009507513-2305USA002752

PATIENT

DRUGS (13)
  1. JANUVIA [Suspect]
     Active Substance: SITAGLIPTIN PHOSPHATE
     Dosage: UNK
     Route: 048
  2. BASAGLAR KWIKPEN [Concomitant]
     Active Substance: INSULIN GLARGINE
     Dosage: 8 UNITS DAILY AT BEDTIME
     Route: 058
     Dates: start: 20220315
  3. BYDUREON BCISE [Concomitant]
     Active Substance: EXENATIDE
     Dosage: 2 MG EVERY 7 DAYS IN THE ABDOMEN, THIGHS, OR OUTER AREA OF UPPER ARM ROTATING INJECTIONSITES
     Route: 058
     Dates: start: 20230124
  4. CAPSAICIN [Concomitant]
     Active Substance: CAPSAICIN
     Dosage: TWICE DAILY AS NEEDED
     Route: 061
     Dates: start: 20221020
  5. CLOPIDOGREL [Concomitant]
     Active Substance: CLOPIDOGREL BISULFATE
     Dosage: 1 TABLET EVERY DAY
     Route: 048
     Dates: start: 20220327
  6. ESTRING [Concomitant]
     Active Substance: ESTRADIOL
     Dosage: 1 VAGINAL RING EVERY 90 DAYS
     Route: 067
     Dates: start: 20230124
  7. GABAPENTIN [Concomitant]
     Active Substance: GABAPENTIN
     Dosage: 3 CAPSULES EVERY EVENING AT DINNERTIME AND 2 ADDITIONAL CAPSULES EVERY NIGHT AT BEDTIME
     Route: 048
     Dates: start: 20230103
  8. JARDIANCE [Concomitant]
     Active Substance: EMPAGLIFLOZIN
     Dosage: 1 TABLET EVERY DAY IN THE MORNING
     Route: 048
     Dates: start: 20220504
  9. LEVOTHYROXINE [Concomitant]
     Active Substance: LEVOTHYROXINE
     Dosage: 1 TABLET EVERY DAY
     Route: 048
     Dates: start: 20221003
  10. DEXTROSE [Concomitant]
     Active Substance: DEXTROSE\DEXTROSE MONOHYDRATE
     Dosage: USE AS DIRECTED TO CHECK BLOOD GLUCOSE BID
     Dates: start: 20211008
  11. PANTOPRAZOLE [Concomitant]
     Active Substance: PANTOPRAZOLE
     Dosage: 1 TABLET EVERY DAY
     Route: 048
     Dates: start: 20221207
  12. PAROXETINE [Concomitant]
     Active Substance: PAROXETINE
     Dosage: 1 TABLET EVERY DAY
     Route: 048
     Dates: start: 20221108
  13. ROSUVASTATIN [Concomitant]
     Active Substance: ROSUVASTATIN
     Dosage: 1 TABLET EVERY DAY
     Route: 048
     Dates: start: 20221002

REACTIONS (3)
  - Oropharyngeal pain [Unknown]
  - Drug hypersensitivity [Unknown]
  - Myalgia [Unknown]
